FAERS Safety Report 7714685-5 (Version None)
Quarter: 2011Q3

REPORT INFORMATION
  Report Type: 
  Country: None (occurrence: None)
  Receive Date: 20110829
  Receipt Date: 20110826
  Transmission Date: 20111222
  Serious: Yes (Death, Other)
  Sender: FDA-Public Use
  Company Number: JM-B.I. PHARMACEUTICALS,INC./RIDGEFIELD-2011-CN-01238CN

PATIENT
  Sex: Male

DRUGS (4)
  1. VENTOLIN HFA [Concomitant]
  2. AEROFLUX [Concomitant]
  3. SPIRIVA [Suspect]
     Dates: start: 20000101
  4. BECLOMETHASONE DIPROPIONATE [Concomitant]

REACTIONS (1)
  - LUNG NEOPLASM MALIGNANT [None]
